FAERS Safety Report 8246391-5 (Version None)
Quarter: 2012Q1

REPORT INFORMATION
  Report Type: 
  Country: None (occurrence: None)
  Receive Date: 20120330
  Receipt Date: 20120326
  Transmission Date: 20120608
  Serious: Yes (Other)
  Sender: FDA-Public Use
  Company Number: US-VERTEX PHARMACEUTICALS INC.-AE-2012-003814

PATIENT
  Sex: Female
  Weight: 81.72 kg

DRUGS (3)
  1. PEGASYS [Concomitant]
     Indication: HEPATITIS C
     Route: 058
     Dates: start: 20120306
  2. RIBAVIRIN [Concomitant]
     Indication: HEPATITIS C
     Route: 048
     Dates: start: 20120306
  3. INCIVEK [Suspect]
     Indication: HEPATITIS C
     Route: 048
     Dates: start: 20120306

REACTIONS (8)
  - PYREXIA [None]
  - WEIGHT DECREASED [None]
  - ASTHENIA [None]
  - SUICIDAL IDEATION [None]
  - FATIGUE [None]
  - RASH [None]
  - IRRITABILITY [None]
  - DEPRESSION [None]
